FAERS Safety Report 13177421 (Version 1)
Quarter: 2017Q1

REPORT INFORMATION
  Report Type: Report from Study
  Country: US (occurrence: US)
  Receive Date: 20170201
  Receipt Date: 20170201
  Transmission Date: 20170428
  Serious: No
  Sender: FDA-Public Use
  Company Number: US-EXELIXIS-CABO-16006174

PATIENT
  Sex: Male

DRUGS (13)
  1. GABAPENTIN. [Concomitant]
     Active Substance: GABAPENTIN
  2. CIALIS [Concomitant]
     Active Substance: TADALAFIL
  3. INLYTA [Concomitant]
     Active Substance: AXITINIB
  4. KEPPRA [Concomitant]
     Active Substance: LEVETIRACETAM
  5. OXYCODONE [Concomitant]
     Active Substance: OXYCODONE
  6. OXYCONTIN [Concomitant]
     Active Substance: OXYCODONE HYDROCHLORIDE
  7. XANAX [Concomitant]
     Active Substance: ALPRAZOLAM
  8. HYDROXYZINE [Concomitant]
     Active Substance: HYDROXYZINE HYDROCHLORIDE
  9. JANUMET [Concomitant]
     Active Substance: METFORMIN HYDROCHLORIDE\SITAGLIPTIN PHOSPHATE
  10. COMETRIQ [Suspect]
     Active Substance: CABOZANTINIB S-MALATE
     Indication: RENAL CANCER
     Dosage: 60 MG, QD
     Route: 048
     Dates: start: 20160310
  11. NORVASC [Concomitant]
     Active Substance: AMLODIPINE BESYLATE
  12. ZOFRAN [Concomitant]
     Active Substance: ONDANSETRON HYDROCHLORIDE
  13. MELAZEPAM [Concomitant]

REACTIONS (6)
  - Scab [Unknown]
  - Nasopharyngitis [Unknown]
  - Amnesia [Unknown]
  - Off label use [Unknown]
  - Acne [Not Recovered/Not Resolved]
  - Pruritus [Unknown]
